FAERS Safety Report 9351658 (Version 1)
Quarter: 2013Q2

REPORT INFORMATION
  Report Type: Spontaneous
  Country: FR (occurrence: FR)
  Receive Date: 20130617
  Receipt Date: 20130617
  Transmission Date: 20140414
  Serious: Yes (Hospitalization, Other)
  Sender: FDA-Public Use
  Company Number: FR-TEVA-412593ISR

PATIENT
  Age: 57 Year
  Sex: Male

DRUGS (8)
  1. FUROSEMIDE TEVA 40 MG [Suspect]
     Indication: LUNG DISORDER
     Dosage: 40 MILLIGRAM DAILY; MORE THAN 6 MONTHS
     Dates: start: 2012, end: 20130609
  2. CONVERTING ENZYME INHIBITOR [Concomitant]
  3. CONVERTING ENZYME INHIBITOR [Concomitant]
  4. CONVERTING ENZYME INHIBITOR [Concomitant]
  5. CONVERTING ENZYME INHIBITOR [Concomitant]
  6. ANTIHYPERTENSIVE TREATMENTS [Concomitant]
  7. ANTICOAGULANT THERAPY [Concomitant]
  8. ANTIDIABETIC THERAPY [Concomitant]

REACTIONS (3)
  - Acute pulmonary oedema [Recovered/Resolved]
  - Fatigue [Recovered/Resolved]
  - Dyspnoea [Recovered/Resolved]
